FAERS Safety Report 9047149 (Version 1)
Quarter: 2013Q1

REPORT INFORMATION
  Report Type: Report from Study
  Country: US (occurrence: US)
  Receive Date: 20130130
  Receipt Date: 20130130
  Transmission Date: 20140127
  Serious: No
  Sender: FDA-Public Use
  Company Number: US-ABBOTT-12P-163-0976875-00

PATIENT
  Age: 47 Year
  Sex: Male

DRUGS (5)
  1. HUMIRA [Suspect]
     Indication: PSORIATIC ARTHROPATHY
     Dates: start: 20120807
  2. DIOVAN [Concomitant]
     Indication: HYPERTENSION
  3. CRESTOR [Concomitant]
     Indication: BLOOD CHOLESTEROL INCREASED
  4. MELOXICAM [Concomitant]
     Indication: BACK PAIN
  5. VITAMIN D3 [Concomitant]
     Indication: DIABETES MELLITUS

REACTIONS (4)
  - Dyspnoea [Recovering/Resolving]
  - Injection site pain [Recovering/Resolving]
  - Chronic obstructive pulmonary disease [Recovering/Resolving]
  - Device malfunction [Unknown]
